FAERS Safety Report 7850651-7 (Version None)
Quarter: 2011Q4

REPORT INFORMATION
  Report Type: 
  Country: None (occurrence: None)
  Receive Date: 20111024
  Receipt Date: 20111013
  Transmission Date: 20120403
  Serious: Yes (Hospitalization)
  Sender: FDA-Public Use
  Company Number: 2011-01170

PATIENT
  Sex: Male

DRUGS (2)
  1. SITAGLIPTIN    /  /2011 - (JANUVIA) [Concomitant]
  2. LISINOPRIL [Suspect]
     Dosage: , ORAL
     Route: 048

REACTIONS (3)
  - CONFUSIONAL STATE [None]
  - CHEST PAIN [None]
  - NIPPLE PAIN [None]
